FAERS Safety Report 25628182 (Version 2)
Quarter: 2025Q3

REPORT INFORMATION
  Report Type: Spontaneous
  Country: US (occurrence: US)
  Receive Date: 20250731
  Receipt Date: 20250926
  Transmission Date: 20251020
  Serious: Yes (Other)
  Sender: TEVA
  Company Number: US-TEVA-VS-3354949

PATIENT
  Age: 41 Year
  Sex: Male

DRUGS (2)
  1. UZEDY [Suspect]
     Active Substance: RISPERIDONE
     Indication: Schizophrenia
     Dosage: 150/0.42MG/ML
     Route: 065
     Dates: start: 20250624
  2. UZEDY [Suspect]
     Active Substance: RISPERIDONE
     Dosage: 125/0.35MG/ML
     Route: 065
     Dates: start: 20250525

REACTIONS (3)
  - Schizophrenia [Unknown]
  - Mania [Unknown]
  - Product use issue [Unknown]

NARRATIVE: CASE EVENT DATE: 20250101
